FAERS Safety Report 4796907-6 (Version None)
Quarter: 2005Q4

REPORT INFORMATION
  Report Type: 
  Country: None (occurrence: None)
  Receive Date: 20051013
  Receipt Date: 20050928
  Transmission Date: 20060501
  Serious: Yes (Other)
  Sender: FDA-Public Use
  Company Number: IT-GILEAD-2005-0008745

PATIENT
  Age: 42 Year
  Sex: Male

DRUGS (19)
  1. VIREAD [Suspect]
     Indication: DRUG USE FOR UNKNOWN INDICATION
     Dates: end: 20030602
  2. VIREAD [Suspect]
     Dates: start: 20030605
  3. LAMIVUDINE [Concomitant]
     Dates: end: 20030602
  4. LAMIVUDINE [Concomitant]
     Dates: start: 20030605
  5. LOPINAVIR/RITONAVIR [Concomitant]
     Dates: end: 20030602
  6. LOPINAVIR/RITONAVIR [Concomitant]
     Dates: start: 20050605
  7. LOPINAVIR/RITONAVIR [Concomitant]
  8. TACROLIMUS [Concomitant]
     Indication: IMMUNOSUPPRESSION
     Dates: start: 20030601
  9. TACROLIMUS [Concomitant]
     Dates: start: 20030701
  10. PEGYLATED INTERFERON [Concomitant]
     Indication: ASTHENIA
  11. PEGYLATED INTERFERON [Concomitant]
     Indication: DEPRESSION
  12. PEGYLATED INTERFERON [Concomitant]
     Indication: WEIGHT DECREASED
  13. PEGYLATED INTERFERON [Concomitant]
     Indication: APATHY
  14. PEGYLATED INTERFERON [Concomitant]
     Indication: CD4 LYMPHOCYTES DECREASED
  15. RIBAVIRIN [Concomitant]
     Indication: ASTHENIA
  16. RIBAVIRIN [Concomitant]
     Indication: DEPRESSION
  17. RIBAVIRIN [Concomitant]
     Indication: WEIGHT DECREASED
  18. RIBAVIRIN [Concomitant]
     Indication: APATHY
  19. RIBAVIRIN [Concomitant]
     Indication: CD4 LYMPHOCYTES DECREASED

REACTIONS (8)
  - APATHY [None]
  - ASTHENIA [None]
  - CD4 LYMPHOCYTES DECREASED [None]
  - DEPRESSION [None]
  - DISEASE RECURRENCE [None]
  - DRUG INTERACTION POTENTIATION [None]
  - HEPATITIS C [None]
  - WEIGHT DECREASED [None]
